FAERS Safety Report 8738741 (Version 3)
Quarter: 2013Q4

REPORT INFORMATION
  Report Type: Spontaneous
  Country: US (occurrence: US)
  Receive Date: 20120823
  Receipt Date: 20131031
  Transmission Date: 20140711
  Serious: Yes (Death)
  Sender: FDA-Public Use
  Company Number: US-009507513-1208USA006746

PATIENT
  Age: 65 Year
  Sex: Female

DRUGS (16)
  1. FOSAMAX [Suspect]
     Indication: OSTEOPOROSIS
     Route: 048
  2. KLONOPIN [Concomitant]
     Dosage: 5 MG, HS
  3. TYLENOL [Concomitant]
     Dosage: 500 MG, PRN
  4. PYRIDOXINE [Concomitant]
     Dosage: 50 MG, BID
  5. ZOFRAN [Concomitant]
     Dosage: UNK, PRN
  6. VIACTIV SOFT CALCIUM CHEWS [Concomitant]
     Dosage: UNK, BID
  7. SODIUM CHLORIDE [Concomitant]
     Dosage: SALINE NASAL SPRAY
  8. SENOKOT (SENNOSIDES) [Concomitant]
     Dosage: UNK, PRN
  9. AMBIEN [Concomitant]
     Dosage: 5 MG, HS
  10. CYANOCOBALAMIN [Concomitant]
     Dosage: 1 NG, QD
  11. OXYCONTIN [Concomitant]
     Dosage: 10 MG, Q12H
  12. OXYIR [Concomitant]
     Indication: PAIN
     Dosage: 10-20 MG Q 3-4 H PRN
  13. SUDAFED [Concomitant]
     Dosage: UNK, PRN
  14. CHLORASEPTIC SPRAY + GARGLE [Concomitant]
     Dosage: UNK, PRN
  15. ROBITUSSIN [Concomitant]
     Indication: COUGH
     Dosage: UNK, PRN
  16. TUSSIONEX (BROMHEXINE HYDROCHLORIDE) [Concomitant]
     Indication: COUGH
     Dosage: UNK, PRN

REACTIONS (4)
  - Non-small cell lung cancer [Fatal]
  - Deep vein thrombosis [Unknown]
  - Drug intolerance [Unknown]
  - Dyspepsia [Unknown]
